FAERS Safety Report 5053276-4 (Version None)
Quarter: 2006Q3

REPORT INFORMATION
  Report Type: 
  Country: None (occurrence: None)
  Receive Date: 20060712
  Receipt Date: 20060628
  Transmission Date: 20061208
  Serious: Yes (Life-Threatening, Hospitalization)
  Sender: FDA-Public Use
  Company Number: 2006RR-02826

PATIENT
  Age: 59 Year
  Sex: Female

DRUGS (4)
  1. VERAPAMIL [Suspect]
     Dosage: 3 G, ORAL
     Route: 048
  2. ENALAPRIL MALEATE [Suspect]
     Indication: HYPERTENSION
     Dosage: 6 PILLS, ORAL
     Route: 048
  3. METOPROLOL TARTRATE [Suspect]
     Indication: HYPERTENSION
  4. DISOTHIAZIDE [Concomitant]

REACTIONS (10)
  - CARDIOGENIC SHOCK [None]
  - HYPERGLYCAEMIA [None]
  - INTENTIONAL OVERDOSE [None]
  - LETHARGY [None]
  - METABOLIC ACIDOSIS [None]
  - NODAL RHYTHM [None]
  - PLEURAL EFFUSION [None]
  - PULMONARY CONGESTION [None]
  - RENAL FAILURE [None]
  - SYNCOPE [None]
